FAERS Safety Report 6549054-7 (Version None)
Quarter: 2010Q1

REPORT INFORMATION
  Report Type: 
  Country: None (occurrence: None)
  Receive Date: 20100119
  Receipt Date: 20100111
  Transmission Date: 20100710
  Serious: Yes (Hospitalization)
  Sender: FDA-Public Use
  Company Number: FABR-1001131

PATIENT
  Age: 59 Year
  Sex: Female
  Weight: 97 kg

DRUGS (1)
  1. FABRAZYME [Suspect]
     Indication: FABRY'S DISEASE
     Dosage: 97 MG/KG, Q2W, INTRAVENOUS
     Route: 042
     Dates: start: 20060401

REACTIONS (3)
  - FACIAL BONES FRACTURE [None]
  - FALL [None]
  - UPPER LIMB FRACTURE [None]
